FAERS Safety Report 7296124-4 (Version None)
Quarter: 2011Q1

REPORT INFORMATION
  Report Type: 
  Country: None (occurrence: None)
  Receive Date: 20110216
  Receipt Date: 20110208
  Transmission Date: 20110831
  Serious: Yes (Other)
  Sender: FDA-Public Use
  Company Number: US-AMGEN-USASP2011007574

PATIENT
  Age: 62 Year
  Sex: Male

DRUGS (3)
  1. SENSIPAR [Suspect]
     Indication: HYPERPARATHYROIDISM SECONDARY
     Dates: start: 20100101
  2. VITAMINS NOS [Concomitant]
  3. OTHER MINERAL SUPPLEMENTS [Concomitant]

REACTIONS (1)
  - HYPOGLYCAEMIA [None]
